FAERS Safety Report 8078527-3 (Version None)
Quarter: 2012Q1

REPORT INFORMATION
  Report Type: 
  Country: None (occurrence: None)
  Receive Date: 20120124
  Receipt Date: 20120113
  Transmission Date: 20120608
  Serious: Yes (Hospitalization)
  Sender: FDA-Public Use
  Company Number: ACO_27330_2011

PATIENT
  Age: 51 Year
  Sex: Female
  Weight: 60.8 kg

DRUGS (9)
  1. LITHIUM CARBONATE [Concomitant]
  2. FOSAMAX [Concomitant]
  3. DOCUSATE SODIUM (DOCUSATE SODIUM) [Concomitant]
  4. PROPRANOLOL [Concomitant]
  5. SYNTHROID [Concomitant]
  6. GILENYA [Suspect]
     Indication: MULTIPLE SCLEROSIS
     Dates: start: 20111101, end: 20111215
  7. TEMAZEPAM [Concomitant]
  8. DEPAKOTE [Concomitant]
  9. AMPYRA [Suspect]
     Indication: GAIT DISTURBANCE
     Dosage: 10 MG, BID, ORAL
     Route: 048
     Dates: start: 20110701, end: 20120112

REACTIONS (6)
  - PARAESTHESIA [None]
  - HYPOAESTHESIA [None]
  - HEART RATE DECREASED [None]
  - WEIGHT DECREASED [None]
  - URINARY TRACT INFECTION [None]
  - MALAISE [None]
